FAERS Safety Report 14944134 (Version 1)
Quarter: 2018Q2

REPORT INFORMATION
  Report Type: Spontaneous
  Country: JP (occurrence: JP)
  Receive Date: 20180528
  Receipt Date: 20180528
  Transmission Date: 20180711
  Serious: Yes (Hospitalization)
  Sender: FDA-Public Use
  Company Number: JP-ELI_LILLY_AND_COMPANY-JP201805008245

PATIENT
  Age: 56 Year
  Sex: Female
  Weight: 40 kg

DRUGS (13)
  1. QUETIAPINE                         /01270902/ [Suspect]
     Active Substance: QUETIAPINE FUMARATE
     Indication: SCHIZOPHRENIA
     Dosage: 600 MG, DAILY
     Route: 048
     Dates: end: 20180322
  2. RISPERIDONE. [Suspect]
     Active Substance: RISPERIDONE
     Indication: SCHIZOPHRENIA
     Dosage: 3 MG, DAILY
     Route: 048
     Dates: end: 20180322
  3. LEXOTAN [Concomitant]
     Active Substance: BROMAZEPAM
     Dosage: UNK
     Route: 048
     Dates: end: 20180322
  4. TASMOLIN                           /00079501/ [Concomitant]
     Active Substance: BIPERIDEN
     Dosage: UNK
     Route: 048
     Dates: end: 20180322
  5. FLUNITRAZEPAM [Concomitant]
     Active Substance: FLUNITRAZEPAM
     Dosage: UNK
     Route: 048
     Dates: end: 20180322
  6. LANDSEN [Concomitant]
     Active Substance: CLONAZEPAM
     Dosage: 0.5 MG, DAILY
     Route: 048
     Dates: end: 20180322
  7. ZYPREXA [Suspect]
     Active Substance: OLANZAPINE
     Indication: SCHIZOPHRENIA
     Dosage: 10 MG, DAILY
     Route: 048
     Dates: end: 20180322
  8. MIYA-BM [Concomitant]
     Active Substance: CLOSTRIDIUM BUTYRICUM SPORES STRAIN M-55
     Dosage: UNK
     Route: 048
     Dates: end: 20180322
  9. BROTIZOLAM [Concomitant]
     Active Substance: BROTIZOLAM
     Dosage: UNK
     Route: 048
     Dates: end: 20180322
  10. MAGNESIUM OXIDE. [Concomitant]
     Active Substance: MAGNESIUM OXIDE
     Dosage: 1 G, DAILY
     Dates: end: 20180322
  11. LEVOTOMIN                          /00038602/ [Suspect]
     Active Substance: LEVOMEPROMAZINE
     Indication: SCHIZOPHRENIA
     Dosage: 25 MG, DAILY
     Route: 048
     Dates: end: 20180322
  12. SHOSEIRYUTO                        /08511601/ [Concomitant]
     Dosage: UNK
     Dates: end: 20180322
  13. P MAGEN [Concomitant]
     Active Substance: ALUMINUM SILICATE\CALCIUM CARBONATE\DIASTASE\HERBALS\SODIUM BICARBONATE
     Dosage: UNK
     Route: 048
     Dates: end: 20180322

REACTIONS (2)
  - Water intoxication [Recovering/Resolving]
  - Neuroleptic malignant syndrome [Recovering/Resolving]

NARRATIVE: CASE EVENT DATE: 20180322
